FAERS Safety Report 12315889 (Version 4)
Quarter: 2016Q2

REPORT INFORMATION
  Report Type: Report from Study
  Country: US (occurrence: US)
  Receive Date: 20160428
  Receipt Date: 20160524
  Transmission Date: 20160815
  Serious: No
  Sender: FDA-Public Use
  Company Number: US-MDT-ADR-2016-00246

PATIENT
  Age: 53 Year
  Sex: Male

DRUGS (3)
  1. BUPIVICAINE [Suspect]
     Active Substance: BUPIVACAINE
     Dosage: 2.906 MG/DAY
     Route: 037
  2. CLONIDINE. [Suspect]
     Active Substance: CLONIDINE
     Dosage: 8.718 MCG/DAY
     Route: 037
  3. BACLOFEN. [Suspect]
     Active Substance: BACLOFEN
     Dosage: 14.53 MCG/DAY
     Route: 037

REACTIONS (3)
  - Fluctuance [Not Recovered/Not Resolved]
  - Medical device site extravasation [Not Recovered/Not Resolved]
  - Implant site extravasation [Not Recovered/Not Resolved]

NARRATIVE: CASE EVENT DATE: 20160126
